FAERS Safety Report 4571176-0 (Version None)
Quarter: 2005Q1

REPORT INFORMATION
  Report Type: 
  Country: None (occurrence: None)
  Receive Date: 20050202
  Receipt Date: 20050112
  Transmission Date: 20050727
  Serious: Yes (Other)
  Sender: FDA-Public Use
  Company Number: GBS040915584

PATIENT
  Age: 70 Year
  Sex: Female

DRUGS (4)
  1. FORTEO [Suspect]
     Indication: OSTEOPOROSIS
     Dosage: 20 UG DAY
     Dates: start: 20040901, end: 20040907
  2. SULFASALAZINE [Concomitant]
  3. CELEBREX [Concomitant]
  4. NITROGLYCERIN [Concomitant]

REACTIONS (13)
  - ANGINA UNSTABLE [None]
  - ARTHRALGIA [None]
  - BACK PAIN [None]
  - BONE PAIN [None]
  - CHEST WALL PAIN [None]
  - FATIGUE [None]
  - ISCHAEMIA [None]
  - MUSCULOSKELETAL PAIN [None]
  - MYOCARDIAL INFARCTION [None]
  - PAIN IN EXTREMITY [None]
  - PAIN IN JAW [None]
  - REFUSAL OF TREATMENT BY PATIENT [None]
  - SPINAL FRACTURE [None]
